FAERS Safety Report 6886175-3 (Version None)
Quarter: 2010Q3

REPORT INFORMATION
  Report Type: 
  Country: None (occurrence: None)
  Receive Date: 20100729
  Receipt Date: 20090116
  Transmission Date: 20110219
  Serious: No
  Sender: FDA-Public Use
  Company Number: US-PFIZER INC-2009157358

PATIENT
  Sex: Female

DRUGS (2)
  1. CELEBREX [Suspect]
     Dates: start: 20081201, end: 20081201
  2. ANTI-ASTHMATICS [Concomitant]
     Indication: ASTHMA
     Dosage: UNK

REACTIONS (1)
  - NAUSEA [None]
